FAERS Safety Report 23920927 (Version 6)
Quarter: 2024Q4

REPORT INFORMATION
  Report Type: Spontaneous
  Country: US (occurrence: US)
  Receive Date: 20240530
  Receipt Date: 20241120
  Transmission Date: 20250115
  Serious: No
  Sender: BIOVITRUM
  Company Number: US-BIOVITRUM-2024-US-007806

PATIENT
  Age: 79 Year
  Sex: Female

DRUGS (9)
  1. DOPTELET [Suspect]
     Active Substance: AVATROMBOPAG MALEATE
     Indication: Immune thrombocytopenia
     Dosage: ONE TABLET DAILY, 20 MG EVERY MONDAY, WEDNESDAY, FRIDAY
     Route: 048
     Dates: start: 2023
  2. DOPTELET [Suspect]
     Active Substance: AVATROMBOPAG MALEATE
     Indication: Platelet count decreased
     Dosage: 3 TIMES  PER WEEK/2 TABLETS BY MOUTH ON SUNDAY, TUESDAY AND THURSDAY
     Route: 048
     Dates: start: 2023
  3. DOPTELET [Suspect]
     Active Substance: AVATROMBOPAG MALEATE
     Dosage: AS ORDERED
     Route: 048
  4. PREDNISONE [Concomitant]
     Active Substance: PREDNISONE
     Indication: Product used for unknown indication
  5. NORVASC [Concomitant]
     Active Substance: AMLODIPINE BESYLATE
     Indication: Product used for unknown indication
     Dosage: TAKE 1 TABLET (2.5 MG TOTAL) BY MOUTH ONCE A DAY
     Route: 048
  6. LISINOPRIL (PRINIVIL) [Concomitant]
     Indication: Hypertension
     Dosage: TAKE ONE TABLET BY MOUTH DAILY
     Route: 048
  7. PROTONIX [Concomitant]
     Active Substance: PANTOPRAZOLE SODIUM
     Indication: Product used for unknown indication
     Dosage: TAKE 1 TABLET (40 MG TOTAL) BY MOUTH TWICE DAILY, TABLET, DELAYED RELEASE (E.C.)
     Route: 048
  8. ZOCOR [Concomitant]
     Active Substance: SIMVASTATIN
     Indication: Product used for unknown indication
     Dosage: TAKE ONE TABLET BY MOUTH DAILY
     Route: 048
  9. SUCRALFATE (CARAFATE) [Concomitant]
     Indication: Product used for unknown indication
     Dosage: TAKE 1 TABLET (1 G TOTAL) BY MOUTH EVERY 6 HOURS
     Route: 048

REACTIONS (9)
  - Fungal infection [Not Recovered/Not Resolved]
  - Laryngitis [Unknown]
  - Asthenia [Unknown]
  - Constipation [Unknown]
  - Pain in extremity [Unknown]
  - Haemorrhoids [Unknown]
  - Product dose omission issue [Unknown]
  - Product distribution issue [Unknown]
  - Fatigue [Unknown]

NARRATIVE: CASE EVENT DATE: 20241113
